FAERS Safety Report 4668745-6 (Version None)
Quarter: 2005Q2

REPORT INFORMATION
  Report Type: 
  Country: None (occurrence: None)
  Receive Date: 20050523
  Receipt Date: 20050517
  Transmission Date: 20051028
  Serious: Yes (Other)
  Sender: FDA-Public Use
  Company Number: 200514248US

PATIENT
  Sex: 0

DRUGS (2)
  1. KETEK [Suspect]
     Dosage: DOSE: NOT PROVIDED
  2. CODEINE [Concomitant]
     Dosage: DOSE: NOT PROVIDED

REACTIONS (3)
  - CONVULSION [None]
  - NAUSEA [None]
  - VOMITING [None]
